FAERS Safety Report 18799090 (Version 3)
Quarter: 2022Q3

REPORT INFORMATION
  Report Type: Spontaneous
  Country: CA (occurrence: CA)
  Receive Date: 20210128
  Receipt Date: 20220712
  Transmission Date: 20221026
  Serious: No
  Sender: FDA-Public Use
  Company Number: CA-GLAXOSMITHKLINE-CA2021AMR015056

PATIENT

DRUGS (4)
  1. BENLYSTA [Suspect]
     Active Substance: BELIMUMAB
     Indication: Systemic lupus erythematosus
     Dosage: 600 MG
  2. BENLYSTA [Suspect]
     Active Substance: BELIMUMAB
     Dosage: 560 MG
  3. CELLCEPT [Suspect]
     Active Substance: MYCOPHENOLATE MOFETIL
     Indication: Product used for unknown indication
     Dosage: UNK800
     Route: 048
  4. PLAQUENIL [Suspect]
     Active Substance: HYDROXYCHLOROQUINE SULFATE
     Indication: Product used for unknown indication
     Dosage: UNK 800
     Route: 048

REACTIONS (5)
  - Plantar fasciitis [Unknown]
  - Gait disturbance [Unknown]
  - Pain [Unknown]
  - Mobility decreased [Unknown]
  - Condition aggravated [Unknown]
